FAERS Safety Report 9130882 (Version 1)
Quarter: 2013Q1

REPORT INFORMATION
  Report Type: Report from Study
  Country: US (occurrence: US)
  Receive Date: 20130301
  Receipt Date: 20130301
  Transmission Date: 20140127
  Serious: Yes (Hospitalization, Other)
  Sender: FDA-Public Use
  Company Number: US-US-EMD SERONO, INC.-7195500

PATIENT
  Sex: Female

DRUGS (1)
  1. REBIF [Suspect]
     Indication: MULTIPLE SCLEROSIS
     Route: 058
     Dates: start: 20051028

REACTIONS (8)
  - Nephrolithiasis [Not Recovered/Not Resolved]
  - Pulmonary thrombosis [Unknown]
  - Blood pressure decreased [Unknown]
  - Febrile convulsion [Unknown]
  - Muscle tightness [Not Recovered/Not Resolved]
  - Motor dysfunction [Not Recovered/Not Resolved]
  - Gait disturbance [Unknown]
  - Muscle spasms [Unknown]
